FAERS Safety Report 18524003 (Version 1)
Quarter: 2020Q4

REPORT INFORMATION
  Report Type: Spontaneous
  Country: US (occurrence: US)
  Receive Date: 20201119
  Receipt Date: 20201119
  Transmission Date: 20210114
  Serious: Yes (Hospitalization, Disabling, Other)
  Sender: FDA-Public Use
  Company Number: US-PURDUE-USA-2020-0177095

PATIENT
  Sex: Male

DRUGS (3)
  1. HYDROCODONE BITARTRATE/ACETAMINOPHEN [Suspect]
     Active Substance: ACETAMINOPHEN\HYDROCODONE BITARTRATE
     Indication: PRODUCT USED FOR UNKNOWN INDICATION
     Dosage: UNK UNK, UNK
     Route: 048
  2. OXYCODONE/ ACETAMINOPHEN TABLETS [Suspect]
     Active Substance: ACETAMINOPHEN\OXYCODONE HYDROCHLORIDE
     Indication: PRODUCT USED FOR UNKNOWN INDICATION
     Dosage: UNK, UNK
     Route: 048
  3. TRAMADOL. [Suspect]
     Active Substance: TRAMADOL
     Indication: PRODUCT USED FOR UNKNOWN INDICATION
     Dosage: UNK
     Route: 065

REACTIONS (13)
  - Walking disability [Unknown]
  - Drug withdrawal syndrome [Unknown]
  - Myocardial infarction [Unknown]
  - Stent placement [Unknown]
  - Heart disease congenital [Unknown]
  - Drug dependence [Unknown]
  - Mental disorder [Unknown]
  - Learning disability [Unknown]
  - Cerebrovascular accident [Unknown]
  - Blood pressure fluctuation [Unknown]
  - Amnesia [Not Recovered/Not Resolved]
  - Cardiac disorder [Unknown]
  - Malaise [Unknown]
